FAERS Safety Report 4913160-0 (Version None)
Quarter: 2006Q1

REPORT INFORMATION
  Report Type: 
  Country: None (occurrence: None)
  Receive Date: 20060215
  Receipt Date: 20051010
  Transmission Date: 20060701
  Serious: Yes (Hospitalization)
  Sender: FDA-Public Use
  Company Number: US-MERCK-0510USA06555

PATIENT
  Age: 77 Year
  Sex: Female
  Weight: 86 kg

DRUGS (10)
  1. VIOXX [Suspect]
     Indication: BACK PAIN
     Route: 048
     Dates: start: 20040622, end: 20040901
  2. ATENOLOL [Concomitant]
     Route: 065
  3. METFORMIN [Concomitant]
     Route: 065
  4. PLAVIX [Concomitant]
     Route: 065
  5. ISOSORBIDE MONONITRATE [Concomitant]
     Route: 065
  6. LIPITOR [Concomitant]
     Route: 065
  7. ALLOPURINOL [Concomitant]
     Route: 065
  8. ASPIRIN [Concomitant]
     Route: 065
  9. TARKA [Concomitant]
     Route: 065
  10. NITROQUICK [Concomitant]
     Route: 065

REACTIONS (2)
  - CHEST PAIN [None]
  - ISCHAEMIC STROKE [None]
